FAERS Safety Report 14924686 (Version 1)
Quarter: 2018Q2

REPORT INFORMATION
  Report Type: Spontaneous
  Country: AU (occurrence: AU)
  Receive Date: 20180522
  Receipt Date: 20180522
  Transmission Date: 20180711
  Serious: Yes (Other)
  Sender: FDA-Public Use
  Company Number: AU-OTSUKA-2018_011870

PATIENT
  Age: 50 Year
  Sex: Male
  Weight: 98 kg

DRUGS (8)
  1. CLOPINE [Suspect]
     Active Substance: CLOZAPINE
     Dosage: UPTITRATED UPTO 200 MG, UNK
     Route: 065
     Dates: end: 20180405
  2. ARIPIPRAZOLE. [Suspect]
     Active Substance: ARIPIPRAZOLE
     Indication: SCHIZOPHRENIA
     Dosage: UNK
     Route: 065
  3. DESVENLAFAXINE. [Concomitant]
     Active Substance: DESVENLAFAXINE
     Indication: PRODUCT USED FOR UNKNOWN INDICATION
     Dosage: 100 MG, (MANE)
     Route: 065
  4. CLOPINE [Suspect]
     Active Substance: CLOZAPINE
     Indication: SCHIZOPHRENIA
     Dosage: UNK
     Route: 065
     Dates: start: 20180321
  5. CLOPINE [Suspect]
     Active Substance: CLOZAPINE
     Dosage: UPTITRATED UPTO 100 MG, UNK
     Route: 065
  6. OLANZAPINE. [Suspect]
     Active Substance: OLANZAPINE
     Indication: SCHIZOPHRENIA
     Dosage: UNK
     Route: 065
  7. LURASIDONE [Suspect]
     Active Substance: LURASIDONE
     Indication: SCHIZOPHRENIA
     Dosage: UNK
     Route: 065
  8. ESOMEPRAZOLE [Concomitant]
     Active Substance: ESOMEPRAZOLE
     Indication: PRODUCT USED FOR UNKNOWN INDICATION
     Dosage: 20 MG, PRN
     Route: 065

REACTIONS (6)
  - Pericarditis [Recovered/Resolved]
  - C-reactive protein increased [Recovering/Resolving]
  - Chest pain [Unknown]
  - Cough [Unknown]
  - Drug ineffective [Unknown]
  - Blood creatine phosphokinase increased [Recovering/Resolving]

NARRATIVE: CASE EVENT DATE: 20180405
